FAERS Safety Report 19821422 (Version 1)
Quarter: 2021Q3

REPORT INFORMATION
  Report Type: Spontaneous
  Country: US (occurrence: US)
  Receive Date: 20210909
  Receipt Date: 20210909
  Transmission Date: 20211014
  Serious: Yes (Other)
  Sender: FDA-Public Use
  Company Number: None

PATIENT
  Age: 60 Year
  Sex: Female
  Weight: 73.48 kg

DRUGS (9)
  1. VITAMIN D3 2000 UNITS [Concomitant]
  2. BOTOX [Concomitant]
     Active Substance: ONABOTULINUMTOXINA
  3. METOPROLOL TARTRATE. [Concomitant]
     Active Substance: METOPROLOL TARTRATE
  4. PANTOPRAZOLE [Concomitant]
     Active Substance: PANTOPRAZOLE
  5. ASPIRIN 81 MG [Concomitant]
     Active Substance: ASPIRIN
  6. VASCEPA [Suspect]
     Active Substance: ICOSAPENT ETHYL
     Dosage: ?          QUANTITY:2 DF DOSAGE FORM;?
     Route: 048
     Dates: start: 20210407, end: 20210419
  7. ATORVASTATIN [Concomitant]
     Active Substance: ATORVASTATIN
  8. CLOPIDOGREL [Concomitant]
     Active Substance: CLOPIDOGREL BISULFATE
  9. TRI?ESTARYLLA [Concomitant]
     Active Substance: ETHINYL ESTRADIOL\NORGESTIMATE

REACTIONS (2)
  - Abdominal pain [None]
  - Suspected product contamination [None]

NARRATIVE: CASE EVENT DATE: 20210407
